FAERS Safety Report 18183094 (Version 4)
Quarter: 2020Q4

REPORT INFORMATION
  Report Type: Report from Study
  Country: BR (occurrence: BR)
  Receive Date: 20200821
  Receipt Date: 20201110
  Transmission Date: 20210113
  Serious: Yes (Hospitalization, Other)
  Sender: FDA-Public Use
  Company Number: NVSC2020BR231059

PATIENT
  Age: 64 Year
  Sex: Female
  Weight: 69 kg

DRUGS (10)
  1. COSENTYX [Suspect]
     Active Substance: SECUKINUMAB
     Dosage: UNK
     Route: 065
     Dates: start: 20201015
  2. AMITRIPTYLINE [Concomitant]
     Active Substance: AMITRIPTYLINE
     Indication: DEPRESSION
     Dosage: ONE TABLET DID NOT KNOW HOW TO INFORM THE DOSAGE
     Route: 048
  3. CALCIUM [Concomitant]
     Active Substance: CALCIUM
     Indication: GASTRIC DISORDER
     Dosage: 10 YEARS AGO, QD
     Route: 048
  4. COSENTYX [Suspect]
     Active Substance: SECUKINUMAB
     Dosage: 2 DF, UNKNOWN  (2INJECTIONS OF 150MG)
     Route: 058
     Dates: start: 20180803
  5. COSENTYX [Suspect]
     Active Substance: SECUKINUMAB
     Indication: PSORIATIC ARTHROPATHY
     Dosage: 2 DF, UNKNOWN (2INJECTIONS OF 150MG)
     Route: 058
     Dates: start: 20180803
  6. COSENTYX [Suspect]
     Active Substance: SECUKINUMAB
     Dosage: UNK UNK, UNKNOWN
     Route: 065
  7. COSENTYX [Suspect]
     Active Substance: SECUKINUMAB
     Dosage: 2 DF, UNKNOWN (2INJECTIONS OF 150MG)
     Route: 058
     Dates: start: 20200716
  8. CITONEURIN [Concomitant]
     Active Substance: CYANOCOBALAMIN\PYRIDOXINE HYDROCHLORIDE\THIAMINE
     Indication: GASTRIC DISORDER
     Dosage: 1 DF, Q3MO
     Route: 048
  9. COSENTYX [Suspect]
     Active Substance: SECUKINUMAB
     Dosage: 2 DF, UNKNOWN  (2INJECTIONS OF 150MG)
     Route: 058
     Dates: start: 20200816
  10. FLUOXETINE HYDROCHLORIDE. [Suspect]
     Active Substance: FLUOXETINE HYDROCHLORIDE
     Indication: DEPRESSION
     Dosage: 4 TABLETS DID NOT KNOW HOW TO INFORM DOSAGE
     Route: 048

REACTIONS (3)
  - Malignant melanoma [Not Recovered/Not Resolved]
  - Neoplasm malignant [Unknown]
  - Skin lesion [Not Recovered/Not Resolved]

NARRATIVE: CASE EVENT DATE: 202005
